FAERS Safety Report 10675972 (Version 1)
Quarter: 2014Q4

REPORT INFORMATION
  Report Type: Spontaneous
  Country: US (occurrence: US)
  Receive Date: 20141225
  Receipt Date: 20141225
  Transmission Date: 20150529
  Serious: Yes (Hospitalization, Other)
  Sender: FDA-Public Use
  Company Number: US-JNJFOC-20141212619

PATIENT
  Age: 15 Year
  Sex: Female

DRUGS (3)
  1. SALICYLATES NOS [Suspect]
     Active Substance: UNSPECIFIED INGREDIENT
     Indication: PRODUCT USED FOR UNKNOWN INDICATION
     Dosage: 1/4 OF A BOTTLE OF 325MG SALICYLATE TABS (APPROX. 8000MG OR 135MG/KG)
     Route: 048
  2. IBUPROFEN. [Suspect]
     Active Substance: IBUPROFEN
     Indication: PRODUCT USED FOR UNKNOWN INDICATION
     Route: 048
  3. BISMUTH SALICYLATE [Suspect]
     Active Substance: BISMUTH TRISALICYLATE
     Indication: PRODUCT USED FOR UNKNOWN INDICATION
     Route: 048

REACTIONS (8)
  - Metabolic acidosis [Unknown]
  - Tinnitus [Unknown]
  - Abdominal discomfort [Unknown]
  - Tachypnoea [Unknown]
  - Intentional overdose [Unknown]
  - Abdominal pain [Unknown]
  - Toxicity to various agents [Unknown]
  - Bezoar [Recovered/Resolved]
